FAERS Safety Report 13172793 (Version 2)
Quarter: 2018Q1

REPORT INFORMATION
  Report Type: Spontaneous
  Country: US (occurrence: US)
  Receive Date: 20170201
  Receipt Date: 20180126
  Transmission Date: 20180508
  Serious: No
  Sender: FDA-Public Use
  Company Number: US-ABBVIE-16K-163-1823126-00

PATIENT
  Sex: Female

DRUGS (1)
  1. HUMIRA [Suspect]
     Active Substance: ADALIMUMAB
     Indication: HIDRADENITIS
     Route: 058

REACTIONS (6)
  - Hidradenitis [Unknown]
  - Blood glucose increased [Unknown]
  - Joint range of motion decreased [Unknown]
  - Emotional distress [Unknown]
  - Hidradenitis [Recovered/Resolved]
  - Insomnia [Unknown]
